FAERS Safety Report 21278892 (Version 2)
Quarter: 2022Q3

REPORT INFORMATION
  Report Type: Other
  Country: US (occurrence: US)
  Receive Date: 20220901
  Receipt Date: 20220929
  Transmission Date: 20221027
  Serious: Yes (Other)
  Sender: FDA-Public Use
  Company Number: US-GLENMARK PHARMACEUTICALS-2022GMK074582

PATIENT

DRUGS (1)
  1. ZONISAMIDE [Suspect]
     Active Substance: ZONISAMIDE
     Indication: Product used for unknown indication
     Dosage: UNK
     Route: 065

REACTIONS (14)
  - Loss of consciousness [Unknown]
  - Seizure [Unknown]
  - Chills [Unknown]
  - Pain [Unknown]
  - Fall [Unknown]
  - Personal relationship issue [Unknown]
  - Stress [Unknown]
  - Chest pain [Unknown]
  - Hypertension [Unknown]
  - Muscle spasms [Unknown]
  - Injury [Unknown]
  - Impaired driving ability [Unknown]
  - Insomnia [Unknown]
  - Recalled product [Unknown]
